FAERS Safety Report 13993003 (Version 3)
Quarter: 2018Q1

REPORT INFORMATION
  Report Type: Spontaneous
  Country: GB (occurrence: GB)
  Receive Date: 20170920
  Receipt Date: 20180222
  Transmission Date: 20180508
  Serious: Yes (Hospitalization, Other)
  Sender: FDA-Public Use
  Company Number: GB-PFIZER INC-2017402973

PATIENT
  Age: 37 Year
  Sex: Male
  Weight: 70 kg

DRUGS (5)
  1. OXCARBAZEPINE. [Concomitant]
     Active Substance: OXCARBAZEPINE
     Indication: EPILEPSY
     Dosage: 600 MG, 2X/DAY
     Route: 048
  2. LORAZEPAM. [Concomitant]
     Active Substance: LORAZEPAM
     Dosage: UNK
  3. LEVETIRACETAM. [Concomitant]
     Active Substance: LEVETIRACETAM
     Indication: EPILEPSY
     Dosage: 1 G, 2X/DAY
     Route: 048
  4. PHENYTOIN SODIUM. [Suspect]
     Active Substance: PHENYTOIN SODIUM
     Indication: STATUS EPILEPTICUS
     Dosage: 1700 MG, UNK
     Route: 042
     Dates: start: 20170817, end: 20170817
  5. SODIUM VALPROATE [Concomitant]
     Active Substance: VALPROATE SODIUM
     Indication: EPILEPSY
     Dosage: 400 MG, 2X/DAY
     Route: 048

REACTIONS (10)
  - Blister [Recovered/Resolved]
  - Pain [Recovered/Resolved]
  - Abnormal sensation in eye [Unknown]
  - Rash macular [Unknown]
  - Pruritus generalised [Unknown]
  - Stevens-Johnson syndrome [Recovered/Resolved with Sequelae]
  - Peripheral swelling [Unknown]
  - Dermatitis bullous [Recovered/Resolved]
  - Macule [Unknown]
  - Oral pain [Unknown]

NARRATIVE: CASE EVENT DATE: 20170817
